FAERS Safety Report 25222634 (Version 1)
Quarter: 2025Q2

REPORT INFORMATION
  Report Type: Spontaneous
  Country: GR (occurrence: GR)
  Receive Date: 20250421
  Receipt Date: 20250421
  Transmission Date: 20250716
  Serious: Yes (Other)
  Sender: ROCHE
  Company Number: GR-ROCHE-10000258611

PATIENT
  Age: 34 Year
  Sex: Female

DRUGS (1)
  1. OCREVUS [Suspect]
     Active Substance: OCRELIZUMAB
     Indication: Multiple sclerosis
     Route: 065

REACTIONS (6)
  - Paraesthesia [Unknown]
  - Hypoacusis [Unknown]
  - Nystagmus [Unknown]
  - Decreased vibratory sense [Unknown]
  - Ataxia [Unknown]
  - Muscular weakness [Unknown]
